FAERS Safety Report 5670892-7 (Version None)
Quarter: 2008Q1

REPORT INFORMATION
  Report Type: 
  Country: None (occurrence: None)
  Receive Date: 20080318
  Receipt Date: 20080312
  Transmission Date: 20080703
  Serious: Yes (Other)
  Sender: FDA-Public Use
  Company Number: A0714972A

PATIENT
  Age: 68 Year
  Sex: Female

DRUGS (11)
  1. VERAMYST [Suspect]
     Route: 045
     Dates: start: 20080202, end: 20080308
  2. COUMADIN [Concomitant]
  3. LOPRESSOR [Concomitant]
  4. NEXIUM [Concomitant]
  5. PACERONE [Concomitant]
  6. ALDACTONE [Concomitant]
  7. DIGITEK [Concomitant]
  8. EFFEXOR XR [Concomitant]
  9. PREMPRO [Concomitant]
  10. SYNTHROID [Concomitant]
  11. ZOCOR [Concomitant]

REACTIONS (1)
  - HALLUCINATION, VISUAL [None]
